FAERS Safety Report 10231584 (Version 2)
Quarter: 2014Q2

REPORT INFORMATION
  Report Type: Report from Study
  Country: US (occurrence: US)
  Receive Date: 20140611
  Receipt Date: 20140625
  Transmission Date: 20141212
  Serious: Yes (Hospitalization)
  Sender: FDA-Public Use
  Company Number: US-ACTELION-A-NJ2014-099968

PATIENT
  Age: 5 Year
  Sex: Male

DRUGS (6)
  1. TRACLEER [Suspect]
     Indication: PULMONARY ARTERIAL HYPERTENSION
     Dosage: UNK
     Route: 048
     Dates: start: 20140217
  2. SILDENAFIL [Concomitant]
  3. LASIX [Concomitant]
  4. DIGOXIN [Concomitant]
  5. ALDACTONE [Concomitant]
  6. FLOVENT [Concomitant]

REACTIONS (2)
  - Sleep apnoea syndrome [Recovering/Resolving]
  - Tonsillectomy [Recovering/Resolving]
